FAERS Safety Report 10993622 (Version 1)
Quarter: 2015Q2

REPORT INFORMATION
  Report Type: Spontaneous
  Country: IT (occurrence: None)
  Receive Date: 20150403
  Receipt Date: 20150403
  Transmission Date: 20150821
  Serious: Yes (Other)
  Sender: FDA-Public Use
  Company Number: 2802820

PATIENT
  Age: 57 Year
  Sex: Female

DRUGS (6)
  1. DIBASE [Concomitant]
     Active Substance: CHOLECALCIFEROL
  2. DELTACORTENE [Concomitant]
     Active Substance: PREDNISONE
  3. NATECAL D3 [Concomitant]
     Active Substance: CALCIUM CARBONATE\CHOLECALCIFEROL
  4. METHOTREXATE [Suspect]
     Active Substance: METHOTREXATE
     Indication: SPONDYLITIS
     Route: 030
     Dates: start: 20130415, end: 20141222
  5. FOLINA [Concomitant]
     Active Substance: FOLIC ACID
  6. HUMIRA [Suspect]
     Active Substance: ADALIMUMAB
     Indication: SPONDYLITIS
     Route: 058
     Dates: start: 20140201, end: 20141222

REACTIONS (2)
  - Nasal cavity cancer [None]
  - Basal cell carcinoma [None]

NARRATIVE: CASE EVENT DATE: 20141222
